FAERS Safety Report 8138790-7 (Version None)
Quarter: 2012Q1

REPORT INFORMATION
  Report Type: 
  Country: None (occurrence: None)
  Receive Date: 20120215
  Receipt Date: 20120206
  Transmission Date: 20120608
  Serious: Yes (Hospitalization, Other)
  Sender: FDA-Public Use
  Company Number: PT-TEVA-321438ISR

PATIENT
  Age: 27 Year
  Sex: Male

DRUGS (5)
  1. VINBLASTINE SULFATE [Suspect]
     Indication: TESTIS CANCER
     Route: 065
  2. ETOPOSIDE [Suspect]
     Indication: TESTIS CANCER
     Route: 065
  3. IFOSFAMIDE [Suspect]
     Indication: TESTIS CANCER
     Route: 065
  4. BLEOMYCIN [Suspect]
     Indication: TESTIS CANCER
     Route: 065
  5. CISPLATIN [Suspect]
     Indication: TESTIS CANCER
     Dosage: 1ST-LINE: CYCLES EVERY 21D, 2ND-LINE: CYCLES EVERY 28D
     Route: 065

REACTIONS (3)
  - BRONCHOPULMONARY ASPERGILLOSIS [None]
  - NEUTROPENIA [None]
  - LYMPHOPENIA [None]
